FAERS Safety Report 9679045 (Version 1)
Quarter: 2013Q4

REPORT INFORMATION
  Report Type: Spontaneous
  Country: US (occurrence: None)
  Receive Date: 20131107
  Receipt Date: 20131107
  Transmission Date: 20140711
  Serious: Yes (Hospitalization)
  Sender: FDA-Public Use
  Company Number: DSU-2013-04999

PATIENT
  Age: 87 Year
  Sex: Male
  Weight: 65.77 kg

DRUGS (2)
  1. WELCHOL [Suspect]
     Indication: DIARRHOEA
     Route: 048
     Dates: start: 201310, end: 201310
  2. WELCHOL [Suspect]
     Indication: DIARRHOEA
     Route: 048
     Dates: start: 201310, end: 20131013

REACTIONS (3)
  - Off label use [None]
  - Headache [None]
  - Decreased appetite [None]
